FAERS Safety Report 8248401-8 (Version None)
Quarter: 2012Q1

REPORT INFORMATION
  Report Type: 
  Country: None (occurrence: None)
  Receive Date: 20120330
  Receipt Date: 20120326
  Transmission Date: 20120608
  Serious: Yes (Death, Hospitalization)
  Sender: FDA-Public Use
  Company Number: US-ASTRAZENECA-2012SE20206

PATIENT
  Age: 47 Year
  Sex: Female

DRUGS (1)
  1. BRILINTA [Suspect]
     Indication: ACUTE MYOCARDIAL INFARCTION
     Route: 048
     Dates: start: 20120101, end: 20120101

REACTIONS (3)
  - HAEMORRHAGIC STROKE [None]
  - CARDIOGENIC SHOCK [None]
  - SEPSIS [None]
